FAERS Safety Report 14016917 (Version 1)
Quarter: 2017Q3

REPORT INFORMATION
  Report Type: Spontaneous
  Country: US (occurrence: US)
  Receive Date: 20170927
  Receipt Date: 20170927
  Transmission Date: 20171128
  Serious: No
  Sender: FDA-Public Use
  Company Number: PHEH2017US030550

PATIENT
  Age: 32 Year
  Sex: Female
  Weight: 45.81 kg

DRUGS (1)
  1. CLONAZEPAM TABLETS, USP [Suspect]
     Active Substance: CLONAZEPAM
     Indication: ANXIETY
     Dosage: 1-2 DF, QD
     Route: 048
     Dates: start: 20170719

REACTIONS (1)
  - Drug screen negative [Not Recovered/Not Resolved]

NARRATIVE: CASE EVENT DATE: 20170920
